FAERS Safety Report 6203158-7 (Version None)
Quarter: 2009Q2

REPORT INFORMATION
  Report Type: 
  Country: None (occurrence: None)
  Receive Date: 20090526
  Receipt Date: 20090526
  Transmission Date: 20091009
  Serious: Yes (Hospitalization)
  Sender: FDA-Public Use
  Company Number: None

PATIENT
  Sex: Male
  Weight: 107 kg

DRUGS (6)
  1. CYCLOPHOSPHAMIDE [Suspect]
     Dosage: 2260 MG
  2. CYTARABINE [Suspect]
     Dosage: 2720 MG
  3. MERCAPTOPURINE [Suspect]
     Dosage: 1900 MG
  4. METHOTREXATE [Suspect]
     Dosage: 30 MG
  5. PEG-L-ASPARAGINASE (K-H) [Suspect]
     Dosage: 5605 UNIT
  6. VINCRISTINE SULFATE [Suspect]
     Dosage: 6 MG

REACTIONS (9)
  - BACK PAIN [None]
  - CHILLS [None]
  - DYSPEPSIA [None]
  - FLUSHING [None]
  - HEART RATE INCREASED [None]
  - HYPERHIDROSIS [None]
  - HYPOTENSION [None]
  - NEUTROPENIA [None]
  - RASH [None]
